FAERS Safety Report 9797465 (Version 1)
Quarter: 2014Q1

REPORT INFORMATION
  Report Type: Spontaneous
  Country: RU (occurrence: RU)
  Receive Date: 20140106
  Receipt Date: 20140106
  Transmission Date: 20141002
  Serious: Yes (Hospitalization)
  Sender: FDA-Public Use
  Company Number: PHHY2013RU152444

PATIENT
  Sex: Male

DRUGS (2)
  1. DIOVAN [Suspect]
  2. OSMO-ADALAT [Concomitant]

REACTIONS (4)
  - Renal colic [Unknown]
  - Blood pressure increased [Unknown]
  - Cough [Unknown]
  - Drug ineffective [Unknown]
